FAERS Safety Report 5962517-8 (Version None)
Quarter: 2008Q4

REPORT INFORMATION
  Report Type: 
  Country: None (occurrence: None)
  Receive Date: 20081121
  Receipt Date: 20081110
  Transmission Date: 20090506
  Serious: Yes (Disabling, Other)
  Sender: FDA-Public Use
  Company Number: US-PFIZER INC-2008095359

PATIENT
  Sex: Female
  Weight: 63.5 kg

DRUGS (1)
  1. CHANTIX [Suspect]
     Indication: SMOKING CESSATION THERAPY
     Route: 048
     Dates: start: 20081105, end: 20081106

REACTIONS (9)
  - COGNITIVE DISORDER [None]
  - COMA [None]
  - COMMUNICATION DISORDER [None]
  - GAIT DISTURBANCE [None]
  - IRRITABILITY [None]
  - NERVOUSNESS [None]
  - RESTLESSNESS [None]
  - SHOCK [None]
  - VISION BLURRED [None]
